FAERS Safety Report 4971277-9 (Version None)
Quarter: 2006Q2

REPORT INFORMATION
  Report Type: 
  Country: None (occurrence: None)
  Receive Date: 20060413
  Receipt Date: 20051026
  Transmission Date: 20061013
  Serious: Yes (Hospitalization)
  Sender: FDA-Public Use
  Company Number: US-MERCK-0510USA09444

PATIENT
  Age: 44 Year
  Sex: Female
  Weight: 58 kg

DRUGS (8)
  1. VIOXX [Suspect]
     Indication: ARTHRITIS
     Route: 048
     Dates: start: 20001117, end: 20010523
  2. ACIPHEX [Concomitant]
     Route: 065
  3. LORCET-HD [Concomitant]
     Indication: PAIN
     Route: 065
     Dates: start: 20000314, end: 20020611
  4. ZOLOFT [Concomitant]
     Indication: DEPRESSION
     Route: 065
     Dates: start: 20001215, end: 20010101
  5. NEURONTIN [Concomitant]
     Indication: NEURALGIA
     Route: 065
  6. DIAZEPAM [Concomitant]
     Indication: ANXIETY
     Route: 065
  7. ROBAXIN [Concomitant]
     Indication: MUSCLE SPASMS
     Route: 065
  8. PREVACID [Concomitant]
     Route: 065

REACTIONS (17)
  - ANEURYSM [None]
  - CAROTID ARTERY ATHEROMA [None]
  - CAROTID ARTERY STENOSIS [None]
  - CEREBRAL INFARCTION [None]
  - CEREBROVASCULAR ACCIDENT [None]
  - CORONARY ARTERY DISEASE [None]
  - DEPRESSION [None]
  - DRUG ABUSER [None]
  - HAEMORRHAGE [None]
  - HAEMORRHAGIC TRANSFORMATION STROKE [None]
  - INTRACARDIAC THROMBUS [None]
  - ISCHAEMIA [None]
  - MIGRAINE [None]
  - PERIPHERAL VASCULAR DISORDER [None]
  - SINUS ARRHYTHMIA [None]
  - SINUS BRADYCARDIA [None]
  - TRANSIENT ISCHAEMIC ATTACK [None]
